FAERS Safety Report 25721989 (Version 1)
Quarter: 2025Q3

REPORT INFORMATION
  Report Type: Spontaneous
  Country: US (occurrence: US)
  Receive Date: 20250825
  Receipt Date: 20250825
  Transmission Date: 20251020
  Serious: Yes (Other)
  Sender: TEVA
  Company Number: US-TEVA-VS-3363974

PATIENT
  Age: 51 Year
  Sex: Female

DRUGS (2)
  1. UZEDY [Suspect]
     Active Substance: RISPERIDONE
     Indication: Product used for unknown indication
     Dosage: Q2M
     Route: 065
     Dates: start: 20250801
  2. VALPROIC ACID [Concomitant]
     Active Substance: VALPROIC ACID
     Indication: Product used for unknown indication
     Dosage: LIQUID, QD
     Route: 065

REACTIONS (2)
  - Psychiatric symptom [Unknown]
  - Product administration error [Unknown]

NARRATIVE: CASE EVENT DATE: 20250801
